FAERS Safety Report 10963447 (Version 1)
Quarter: 2015Q1

REPORT INFORMATION
  Report Type: Spontaneous
  Country: US (occurrence: None)
  Receive Date: 20150326
  Receipt Date: 20150326
  Transmission Date: 20150721
  Serious: Yes (Hospitalization)
  Sender: FDA-Public Use
  Company Number: 201503122

PATIENT
  Age: 58 Year
  Sex: Male

DRUGS (2)
  1. TESTIM [Suspect]
     Active Substance: TESTOSTERONE
     Indication: BLOOD TESTOSTERONE DECREASED
     Route: 062
     Dates: start: 20111014, end: 20120202
  2. TESTIM [Suspect]
     Active Substance: TESTOSTERONE
     Indication: ERECTILE DYSFUNCTION
     Route: 062
     Dates: start: 20111014, end: 20120202

REACTIONS (10)
  - Anhedonia [None]
  - Nervous system disorder [None]
  - Cardiomyopathy [None]
  - Economic problem [None]
  - Injury [None]
  - Cerebrovascular accident [None]
  - Pain [None]
  - Cardiovascular disorder [None]
  - Anxiety [None]
  - Impaired work ability [None]

NARRATIVE: CASE EVENT DATE: 20120202
